FAERS Safety Report 8874913 (Version 3)
Quarter: 2012Q4

REPORT INFORMATION
  Report Type: 
  Country: US (occurrence: US)
  Receive Date: 20121030
  Receipt Date: 20121213
  Transmission Date: 20130627
  Serious: Yes (Life-Threatening, Hospitalization)
  Sender: FDA-Public Use
  Company Number: US-GILEAD-2012-0062106

PATIENT
  Sex: Female

DRUGS (20)
  1. LETAIRIS [Suspect]
     Indication: PULMONARY HYPERTENSION
     Dosage: 5 mg, UNK
     Route: 048
     Dates: start: 20120614
  2. LETAIRIS [Suspect]
     Indication: UNEVALUABLE EVENT
  3. LETAIRIS [Suspect]
     Indication: SLEEP APNOEA SYNDROME
  4. LETAIRIS [Suspect]
     Indication: DIASTOLIC DYSFUNCTION
  5. SPIRIVA HANDIHALER [Concomitant]
     Dosage: 18 UNK, UNK
  6. VERAPAMIL [Concomitant]
     Dosage: UNK
  7. TRACLEER                           /01587701/ [Concomitant]
  8. FUROSEMIDE [Concomitant]
  9. DIOVAN [Concomitant]
  10. COUMADIN                           /00014802/ [Concomitant]
  11. ALBUTEROL SULFATE [Concomitant]
  12. ACIPHEX [Concomitant]
  13. HALCION [Concomitant]
  14. VICODIN [Concomitant]
  15. CYANOCOBALAMIN [Concomitant]
  16. VITAMIN D3 [Concomitant]
  17. MULTIVITAMIN                       /00097801/ [Concomitant]
  18. ADVIL                              /00044201/ [Concomitant]
  19. ALBUTEROL SULFATE [Concomitant]
     Indication: WHEEZING
  20. ADCIRCA [Concomitant]

REACTIONS (2)
  - Cor pulmonale [Unknown]
  - Fluid overload [Recovered/Resolved with Sequelae]
